FAERS Safety Report 5363054-4 (Version None)
Quarter: 2007Q2

REPORT INFORMATION
  Report Type: 
  Country: None (occurrence: None)
  Receive Date: 20070615
  Receipt Date: 20070606
  Transmission Date: 20071010
  Serious: Yes (Hospitalization)
  Sender: FDA-Public Use
  Company Number: 2007JP002631

PATIENT
  Age: 75 Year
  Sex: Female

DRUGS (6)
  1. TACROLIMUS [Suspect]
     Indication: RHEUMATOID ARTHRITIS
     Dosage: 1 MG, D, ORAL
     Route: 048
     Dates: start: 20060622, end: 20060627
  2. TACROLIMUS [Suspect]
     Indication: RHEUMATOID ARTHRITIS
     Dosage: 1 MG, D, ORAL
     Route: 048
     Dates: start: 20060706, end: 20060831
  3. PREDNISOLONE [Concomitant]
  4. OLMETEC (OLMESARTAN MEDOXOMIL) [Concomitant]
  5. HYPOCA (BARNIDIPINE) [Concomitant]
  6. GASTER [Concomitant]

REACTIONS (2)
  - BLOOD PRESSURE INCREASED [None]
  - HAEMATEMESIS [None]
